FAERS Safety Report 8504999-3 (Version None)
Quarter: 2012Q3

REPORT INFORMATION
  Report Type: 
  Country: None (occurrence: None)
  Receive Date: 20120712
  Receipt Date: 20120709
  Transmission Date: 20120928
  Serious: Yes (Disabling)
  Sender: FDA-Public Use
  Company Number: US-AMGEN-USASP2012042327

PATIENT
  Age: 49 Year
  Sex: Female

DRUGS (4)
  1. ENBREL [Suspect]
     Indication: CONNECTIVE TISSUE DISORDER
  2. ENBREL [Suspect]
     Indication: VASCULITIS
  3. ENBREL [Suspect]
     Indication: SYSTEMIC LUPUS ERYTHEMATOSUS
     Dosage: 50 MG, QWK
     Dates: start: 20120524
  4. TREXALL [Concomitant]
     Dosage: 1 MG, UNK
     Dates: start: 20110901

REACTIONS (9)
  - DIZZINESS POSTURAL [None]
  - NAUSEA [None]
  - HEADACHE [None]
  - PAIN [None]
  - INJECTION SITE DISCOMFORT [None]
  - INJECTION SITE ERYTHEMA [None]
  - INFLAMMATION [None]
  - INJECTION SITE HAEMATOMA [None]
  - RED BLOOD CELL SEDIMENTATION RATE INCREASED [None]
